FAERS Safety Report 4744210-2 (Version None)
Quarter: 2005Q3

REPORT INFORMATION
  Report Type: 
  Country: None (occurrence: None)
  Receive Date: 20050810
  Receipt Date: 20050810
  Transmission Date: 20060218
  Serious: Yes (Death, Life-Threatening)
  Sender: FDA-Public Use
  Company Number: None

PATIENT
  Sex: Female
  Weight: 54.4316 kg

DRUGS (5)
  1. DURAGESIC-100 [Suspect]
     Dosage: 75 MCG/HR PATCH EVERY 3 DAYS
  2. OTHER PAIN MEDS [Concomitant]
  3. MUSCLE RELAXANT [Concomitant]
  4. ALLERGY DRUG [Concomitant]
  5. OSTEOPOROSIS DRUG [Concomitant]

REACTIONS (13)
  - DYSARTHRIA [None]
  - FALL [None]
  - GASTRIC DISORDER [None]
  - HEAD INJURY [None]
  - HYPERSOMNIA [None]
  - HYPOVENTILATION [None]
  - IMPAIRED DRIVING ABILITY [None]
  - INSOMNIA [None]
  - LOSS OF CONSCIOUSNESS [None]
  - MOUTH HAEMORRHAGE [None]
  - PRESCRIBED OVERDOSE [None]
  - ROAD TRAFFIC ACCIDENT [None]
  - SUDDEN DEATH [None]
